FAERS Safety Report 8302320-7 (Version None)
Quarter: 2012Q2

REPORT INFORMATION
  Report Type: 
  Country: None (occurrence: None)
  Receive Date: 20120420
  Receipt Date: 20120417
  Transmission Date: 20120825
  Serious: Yes (Other)
  Sender: FDA-Public Use
  Company Number: US-JNJFOC-20120403704

PATIENT
  Sex: Female
  Weight: 78.47 kg

DRUGS (18)
  1. GLUCOMANNAN [Concomitant]
     Indication: WEIGHT DECREASED
     Route: 065
  2. PAXIL [Concomitant]
     Indication: ANXIETY
     Route: 065
  3. DIOVAN [Concomitant]
     Indication: BLOOD PRESSURE
     Route: 065
  4. VICODIN [Concomitant]
     Indication: PAIN
     Route: 065
  5. FOCUS FACTOR [Concomitant]
     Indication: MEMORY IMPAIRMENT
     Route: 065
  6. LIPITOR [Concomitant]
     Indication: BLOOD CHOLESTEROL
     Route: 065
  7. FISH OIL [Concomitant]
     Indication: CARDIAC DISORDER
     Route: 065
  8. FLORASTOR [Concomitant]
     Indication: PROBIOTIC THERAPY
     Route: 065
  9. BENEFIBER [Concomitant]
     Indication: MEDICAL DIET
     Route: 065
  10. ROGAINE (FOR WOMEN) [Suspect]
     Route: 061
  11. CULTURELLE [Concomitant]
     Indication: PROBIOTIC THERAPY
     Route: 065
  12. LACTOSE [Concomitant]
     Indication: LACTOSE INTOLERANCE
     Route: 065
  13. PAXIL [Concomitant]
     Indication: DEPRESSION
     Route: 065
  14. GLUCOSAMINE [Concomitant]
     Indication: ARTHROPATHY
     Route: 065
  15. ROGAINE (FOR WOMEN) [Suspect]
     Indication: ALOPECIA
     Route: 061
  16. MULTI-VITAMINS [Concomitant]
     Indication: ROUTINE HEALTH MAINTENANCE
     Route: 065
  17. CALCIUM CARBONATE [Concomitant]
     Indication: GASTROOESOPHAGEAL REFLUX DISEASE
     Route: 065
  18. GAS-X [Concomitant]
     Route: 065

REACTIONS (3)
  - CONTUSION [None]
  - MENSTRUAL DISORDER [None]
  - UNDERDOSE [None]
